FAERS Safety Report 21315081 (Version 4)
Quarter: 2023Q2

REPORT INFORMATION
  Report Type: Spontaneous
  Country: JP (occurrence: JP)
  Receive Date: 20220909
  Receipt Date: 20230629
  Transmission Date: 20230721
  Serious: Yes (Death, Hospitalization, Other)
  Sender: FDA-Public Use
  Company Number: JP-DSJP-DSJ-2020-140073

PATIENT
  Age: 54 Year
  Sex: Female
  Weight: 66.2 kg

DRUGS (18)
  1. ENHERTU [Suspect]
     Active Substance: FAM-TRASTUZUMAB DERUXTECAN-NXKI
     Indication: Invasive ductal breast carcinoma
     Dosage: 5.4 MG/KG, ONCE EVERY 3 WK
     Route: 041
     Dates: start: 20200706, end: 20200706
  2. ENHERTU [Suspect]
     Active Substance: FAM-TRASTUZUMAB DERUXTECAN-NXKI
     Dosage: 4.4 MG/KG, ONCE EVERY 3 WK
     Route: 041
     Dates: start: 20200803, end: 20200803
  3. ENHERTU [Suspect]
     Active Substance: FAM-TRASTUZUMAB DERUXTECAN-NXKI
     Dosage: 4.4 MG/KG, ONCE EVERY 3 WK
     Route: 041
     Dates: start: 20200824, end: 20200824
  4. ENHERTU [Suspect]
     Active Substance: FAM-TRASTUZUMAB DERUXTECAN-NXKI
     Dosage: 4.4 MG/KG, ONCE EVERY 3 WK
     Route: 041
     Dates: start: 20200914, end: 20200914
  5. ENHERTU [Suspect]
     Active Substance: FAM-TRASTUZUMAB DERUXTECAN-NXKI
     Dosage: 4.4 MG/KG, ONCE EVERY 3 WK
     Route: 041
     Dates: start: 20201012, end: 20201012
  6. ENHERTU [Suspect]
     Active Substance: FAM-TRASTUZUMAB DERUXTECAN-NXKI
     Dosage: 4.4 MG/KG, ONCE EVERY 3 WK
     Route: 041
     Dates: start: 20201109, end: 20201109
  7. ZOLEDRONIC ACID [Concomitant]
     Active Substance: ZOLEDRONIC ACID
     Indication: Metastases to bone
     Dosage: 4 MG, QD
     Route: 042
     Dates: start: 20160201, end: 20181009
  8. ZOLEDRONIC ACID [Concomitant]
     Active Substance: ZOLEDRONIC ACID
     Dosage: 4 MG, QD
     Route: 042
     Dates: start: 20181029, end: 20200824
  9. ZOLEDRONIC ACID [Concomitant]
     Active Substance: ZOLEDRONIC ACID
     Dosage: 4 MG, QD
     Route: 042
     Dates: start: 20200914, end: 20201109
  10. OXYCODONE HYDROCHLORIDE [Concomitant]
     Active Substance: OXYCODONE HYDROCHLORIDE
     Indication: Cancer pain
     Dosage: 5 MG, BID
     Route: 048
     Dates: start: 20191210, end: 20201203
  11. OXYCODONE HYDROCHLORIDE [Concomitant]
     Active Substance: OXYCODONE HYDROCHLORIDE
     Indication: Cancer pain
     Dosage: 2.5 MG, AS NEEDED
     Route: 048
     Dates: start: 20191210, end: 20201203
  12. LYRICA [Concomitant]
     Active Substance: PREGABALIN
     Indication: Neuralgia
     Dosage: 75 MG, QD
     Route: 048
     Dates: start: 20180723, end: 20201203
  13. LOXOPROFEN SODIUM DIHYDRATE [Concomitant]
     Active Substance: LOXOPROFEN SODIUM DIHYDRATE
     Indication: Cancer pain
     Dosage: 60 MG, TID
     Route: 048
     Dates: start: 20180723, end: 20201203
  14. LANSOPRAZOLE [Concomitant]
     Active Substance: LANSOPRAZOLE
     Indication: Chronic gastritis
     Dosage: 15 MG, QD
     Route: 048
     Dates: start: 20160125, end: 20201203
  15. ZYPREXA [Concomitant]
     Active Substance: OLANZAPINE
     Indication: Nausea
     Dosage: 2.5 MG, AS NEEDED
     Route: 048
     Dates: start: 20200706, end: 20201203
  16. ZYPREXA [Concomitant]
     Active Substance: OLANZAPINE
     Indication: Vomiting
  17. METOCLOPRAMIDE [Concomitant]
     Active Substance: METOCLOPRAMIDE
     Indication: Nausea
     Dosage: 5 MG, AS NEEDED
     Route: 048
     Dates: start: 20200706, end: 20201203
  18. METOCLOPRAMIDE [Concomitant]
     Active Substance: METOCLOPRAMIDE
     Indication: Vomiting

REACTIONS (10)
  - Disseminated intravascular coagulation [Fatal]
  - Mastitis [Fatal]
  - Diarrhoea [Recovered/Resolved]
  - Vomiting [Recovered/Resolved]
  - Agranulocytosis [Fatal]
  - Sepsis [Unknown]
  - Disease progression [Fatal]
  - Chest wall mass [Unknown]
  - Lymphadenopathy [Unknown]
  - Anaemia [Unknown]

NARRATIVE: CASE EVENT DATE: 20200101
